FAERS Safety Report 15882324 (Version 3)
Quarter: 2020Q1

REPORT INFORMATION
  Report Type: Spontaneous
  Country: FR (occurrence: FR)
  Receive Date: 20190128
  Receipt Date: 20200104
  Transmission Date: 20200409
  Serious: Yes (Death, Life-Threatening, Hospitalization, Other)
  Sender: FDA-Public Use
  Company Number: FR-AUROBINDO-AUR-APL-2019-003066

PATIENT
  Age: 74 Year
  Sex: Female

DRUGS (1)
  1. CELECOXIB. [Suspect]
     Active Substance: CELECOXIB
     Indication: BACK PAIN
     Dosage: 200 MG, SINGLE, 1 TOTAL
     Route: 065
     Dates: start: 20170406, end: 20170406

REACTIONS (26)
  - Systemic inflammatory response syndrome [Not Recovered/Not Resolved]
  - Abdominal pain [Unknown]
  - Rash [Recovered/Resolved]
  - Multiple organ dysfunction syndrome [Fatal]
  - Blood alkaline phosphatase increased [Unknown]
  - C-reactive protein increased [Unknown]
  - Weight decreased [Recovering/Resolving]
  - Vanishing bile duct syndrome [Fatal]
  - Hepatitis cholestatic [Fatal]
  - Aspartate aminotransferase increased [Unknown]
  - Alanine aminotransferase increased [Unknown]
  - Blood albumin increased [Unknown]
  - Thrombocytopenia [Unknown]
  - Cholangitis infective [Fatal]
  - Gamma-glutamyltransferase increased [Unknown]
  - Jaundice [Unknown]
  - Hyperbilirubinaemia [Unknown]
  - Anaemia [Unknown]
  - Decreased appetite [Not Recovered/Not Resolved]
  - Malnutrition [Recovering/Resolving]
  - Leukopenia [Unknown]
  - Asthenia [Unknown]
  - Pyrexia [Unknown]
  - Febrile bone marrow aplasia [Not Recovered/Not Resolved]
  - Nausea [Unknown]
  - General physical health deterioration [Unknown]

NARRATIVE: CASE EVENT DATE: 201704
